FAERS Safety Report 26150481 (Version 1)
Quarter: 2025Q4

REPORT INFORMATION
  Report Type: Spontaneous
  Country: US (occurrence: None)
  Receive Date: 20251211
  Receipt Date: 20251211
  Transmission Date: 20260118
  Serious: No
  Sender: FDA-CTU
  Company Number: None

PATIENT

DRUGS (1)
  1. MONTELUKAST SODIUM [Suspect]
     Active Substance: MONTELUKAST SODIUM
     Indication: Cough
     Dosage: 1 TABLET AT BEDTIME ORAL
     Route: 048
     Dates: start: 20251106, end: 20251210

REACTIONS (2)
  - Epistaxis [None]
  - Therapy cessation [None]

NARRATIVE: CASE EVENT DATE: 20251101
